FAERS Safety Report 10639041 (Version 2)
Quarter: 2015Q1

REPORT INFORMATION
  Report Type: Spontaneous
  Country: JP (occurrence: JP)
  Receive Date: 20141208
  Receipt Date: 20150105
  Transmission Date: 20150720
  Serious: Yes (Hospitalization, Other)
  Sender: FDA-Public Use
  Company Number: US-ASTRAZENECA-2014SE93113

PATIENT
  Sex: Male
  Weight: 7.2 kg

DRUGS (13)
  1. MUCODYNE [Suspect]
     Active Substance: CARBOCYSTEINE
     Indication: NASOPHARYNGITIS
     Route: 048
     Dates: start: 20141124, end: 20141208
  2. SOLDEM 3A [Suspect]
     Active Substance: CARBOHYDRATES\POTASSIUM CHLORIDE\SODIUM CHLORIDE\SODIUM LACTATE
     Indication: FLUID REPLACEMENT
     Dosage: 15 ML/H
     Route: 041
     Dates: start: 20141124, end: 20141127
  3. SOLDEM 1 [Concomitant]
     Indication: FLUID REPLACEMENT
     Dosage: 50 ML/H
     Route: 041
     Dates: start: 20141124, end: 20141124
  4. ASPIRIN. [Suspect]
     Active Substance: ASPIRIN
     Indication: KAWASAKI^S DISEASE
     Route: 048
     Dates: start: 20141124, end: 20141127
  5. CEFOTAXIME [Suspect]
     Active Substance: CEFOTAXIME\CEFOTAXIME SODIUM
     Indication: KAWASAKI^S DISEASE
     Route: 042
     Dates: start: 20141124, end: 20141125
  6. HEPARIN SODIUM. [Concomitant]
     Active Substance: HEPARIN SODIUM
     Indication: FLUID REPLACEMENT
     Dosage: 15 ML/H
     Route: 041
     Dates: start: 20141124, end: 20141127
  7. ASPIRIN. [Suspect]
     Active Substance: ASPIRIN
     Indication: KAWASAKI^S DISEASE
     Route: 048
     Dates: start: 20141128, end: 20141217
  8. CEFCAPENE PIVOXIL HYDROCHLORIDE [Concomitant]
     Active Substance: CEFCAPENE PIVOXIL HYDROCHLORIDE
     Indication: NASOPHARYNGITIS
     Dates: start: 20141122, end: 20141123
  9. HEPARIN SODIUM. [Concomitant]
     Active Substance: HEPARIN SODIUM
     Indication: FLUID REPLACEMENT
     Dosage: 7 ML/H
     Route: 041
     Dates: start: 20141127, end: 20141202
  10. SYNAGIS [Suspect]
     Active Substance: PALIVIZUMAB
     Indication: PREMATURE BABY
     Route: 030
     Dates: start: 20141119
  11. ASVERIN (TIPEPIDINE HIBENZATE) [Suspect]
     Active Substance: TIPEPIDINE HIBENZATE
     Indication: NASOPHARYNGITIS
     Route: 048
     Dates: start: 20141124, end: 20141208
  12. KENKETU GLOVENIN-I [Suspect]
     Active Substance: HUMAN IMMUNOGLOBULIN G
     Indication: KAWASAKI^S DISEASE
     Route: 041
     Dates: start: 20141125, end: 20141126
  13. SOLDEM 3A [Suspect]
     Active Substance: CARBOHYDRATES\POTASSIUM CHLORIDE\SODIUM CHLORIDE\SODIUM LACTATE
     Indication: FLUID REPLACEMENT
     Dosage: 7 ML/H
     Route: 042
     Dates: start: 20141127, end: 20141202

REACTIONS (1)
  - Kawasaki^s disease [Recovered/Resolved]
